FAERS Safety Report 14759513 (Version 1)
Quarter: 2018Q2

REPORT INFORMATION
  Report Type: Spontaneous
  Country: DK (occurrence: DK)
  Receive Date: 20180413
  Receipt Date: 20180413
  Transmission Date: 20180711
  Serious: Yes (Death)
  Sender: FDA-Public Use
  Company Number: DK-JNJFOC-20180410124

PATIENT
  Age: 73 Year
  Sex: Male
  Weight: 90 kg

DRUGS (1)
  1. IMBRUVICA [Suspect]
     Active Substance: IBRUTINIB
     Indication: MANTLE CELL LYMPHOMA
     Dosage: PAUSE SEVERAL ROUNDS DUE TO CARDIAC ARRHYTHMIAS
     Route: 048
     Dates: start: 20170517, end: 20180318

REACTIONS (7)
  - Infection [Fatal]
  - Multiple organ dysfunction syndrome [Fatal]
  - Pyrexia [Not Recovered/Not Resolved]
  - Atrial fibrillation [Fatal]
  - Respiratory failure [Fatal]
  - Left ventricular failure [Fatal]
  - Sepsis [Fatal]

NARRATIVE: CASE EVENT DATE: 201803
